FAERS Safety Report 22333978 (Version 1)
Quarter: 2023Q2

REPORT INFORMATION
  Report Type: Spontaneous
  Country: RO (occurrence: RO)
  Receive Date: 20230517
  Receipt Date: 20230517
  Transmission Date: 20230722
  Serious: Yes (Other)
  Sender: FDA-Public Use
  Company Number: RO-BRISTOL-MYERS SQUIBB COMPANY-2023-065556

PATIENT
  Age: 61 Year
  Sex: Female

DRUGS (10)
  1. REBLOZYL [Suspect]
     Active Substance: LUSPATERCEPT-AAMT
     Indication: Myelodysplastic syndrome
     Dosage: DOSE: 1MG/KG. - 1,33 MG/KG. FREQUENCY: 21 DAYS
     Route: 058
     Dates: start: 20220906
  2. REBLOZYL [Suspect]
     Active Substance: LUSPATERCEPT-AAMT
     Dosage: DOSE: 1MG/KG. - 1,33 MG/KG. FREQUENCY: 21 DAYS
     Route: 058
     Dates: start: 20220926
  3. REBLOZYL [Suspect]
     Active Substance: LUSPATERCEPT-AAMT
     Dosage: DOSE: 1MG/KG - 1,33 MG/KG. FREQUENCY: 21 DAYS
     Route: 058
     Dates: start: 20221024
  4. REBLOZYL [Suspect]
     Active Substance: LUSPATERCEPT-AAMT
     Dosage: DOSE: 1MG/KG - 1,33 MG/KG. FREQUENCY: 21 DAYS. 100MG SC 1 U CER.
     Route: 058
     Dates: start: 20221114
  5. REBLOZYL [Suspect]
     Active Substance: LUSPATERCEPT-AAMT
     Dosage: DOSE: 1MG/KG - 1,33 MG/KG. FREQUENCY: 21 DAYS.
     Route: 058
     Dates: start: 20221205
  6. REBLOZYL [Suspect]
     Active Substance: LUSPATERCEPT-AAMT
     Dosage: DOSE: 1MG/KG - 1,33 MG/KG. FREQUENCY: 21 DAYS.
     Route: 058
     Dates: start: 20221227
  7. REBLOZYL [Suspect]
     Active Substance: LUSPATERCEPT-AAMT
     Dosage: DOSE: 1MG/KG - 1,33 MG/KG. FREQUENCY: 21 DAYS.
     Route: 058
     Dates: start: 20230117
  8. REBLOZYL [Suspect]
     Active Substance: LUSPATERCEPT-AAMT
     Dosage: DOSE: 1MG/KG - 1,33 MG/KG. FREQUENCY: 21 DAYS.
     Route: 058
     Dates: start: 20230214
  9. REBLOZYL [Suspect]
     Active Substance: LUSPATERCEPT-AAMT
     Dosage: DOSE: 1MG/KG - 1,33 MG/KG. FREQUENCY: 21 DAYS.
     Route: 058
     Dates: start: 20230307
  10. REBLOZYL [Suspect]
     Active Substance: LUSPATERCEPT-AAMT
     Dosage: DOSE: 1MG/KG - 1,33 MG/KG. FREQUENCY: 21 DAYS.?1 U CER
     Route: 058
     Dates: start: 20230328

REACTIONS (4)
  - Malaise [Unknown]
  - Nausea [Unknown]
  - Dizziness [Unknown]
  - Anaemia macrocytic [Unknown]
